FAERS Safety Report 6636155-8 (Version None)
Quarter: 2010Q1

REPORT INFORMATION
  Report Type: 
  Country: None (occurrence: None)
  Receive Date: 20100316
  Receipt Date: 20100310
  Transmission Date: 20100710
  Serious: Yes (Death, Life-Threatening, Hospitalization, Other)
  Sender: FDA-Public Use
  Company Number: BE-ELI_LILLY_AND_COMPANY-BE201003003364

PATIENT
  Sex: Male
  Weight: 64 kg

DRUGS (3)
  1. GEMCITABINE HCL [Suspect]
     Indication: NON-SMALL CELL LUNG CANCER
     Dosage: 1000 MG/M2, D1 AND D8 OF 21 DAY CYCLE
     Route: 042
     Dates: start: 20091106, end: 20091209
  2. CETUXIMAB [Suspect]
     Indication: NON-SMALL CELL LUNG CANCER
     Dosage: 250 MG/M2, WEEKLY (1/W)
     Route: 042
     Dates: start: 20091106, end: 20091209
  3. CISPLATIN [Suspect]
     Indication: NON-SMALL CELL LUNG CANCER
     Dosage: 60 MG/M2, D1 OF 21 DAY CYCLE
     Route: 042
     Dates: start: 20091106, end: 20091209

REACTIONS (3)
  - PNEUMONIA [None]
  - PYELONEPHRITIS [None]
  - RENAL FAILURE ACUTE [None]
